FAERS Safety Report 14897887 (Version 3)
Quarter: 2019Q4

REPORT INFORMATION
  Report Type: Report from Study
  Country: US (occurrence: US)
  Receive Date: 20180515
  Receipt Date: 20191202
  Transmission Date: 20200122
  Serious: No
  Sender: FDA-Public Use
  Company Number: US-SA-2017SA217107

PATIENT
  Age: 90 Year
  Sex: Female
  Weight: 68 kg

DRUGS (10)
  1. METOPROLOL TARTRATE. [Concomitant]
     Active Substance: METOPROLOL TARTRATE
     Dosage: 2.5 MG,BID
     Route: 065
  2. LIPITOR [Concomitant]
     Active Substance: ATORVASTATIN CALCIUM
     Indication: BLOOD CHOLESTEROL
     Dosage: 40 MG,UNK
     Route: 065
  3. INSULIN GLARGINE [Suspect]
     Active Substance: INSULIN GLARGINE
     Dosage: 32 DF, HS
     Route: 051
     Dates: start: 201711
  4. WARFARIN [Concomitant]
     Active Substance: WARFARIN
     Indication: BLOOD DISORDER
     Dosage: 5 MG,UNK
     Route: 065
     Dates: start: 20120801
  5. ACETYLSALICYLIC ACID [Concomitant]
     Active Substance: ASPIRIN
     Indication: BLOOD DISORDER
     Dosage: UNK UNK,1X
     Route: 065
  6. INSULIN GLARGINE [Suspect]
     Active Substance: INSULIN GLARGINE
     Indication: TYPE 2 DIABETES MELLITUS
     Dosage: 32 DF, QD
     Route: 051
     Dates: start: 201711
  7. METFORMIN [Concomitant]
     Active Substance: METFORMIN HYDROCHLORIDE
     Indication: DIABETES MELLITUS
     Dosage: DOSING DETAILS: 500 MORNING NIGHT
     Route: 065
  8. COUMADIN [Concomitant]
     Active Substance: WARFARIN SODIUM
  9. INSULIN GLARGINE [Suspect]
     Active Substance: INSULIN GLARGINE
     Dosage: 36 U, QD
     Route: 058
     Dates: start: 201711
  10. LISINOPRIL. [Concomitant]
     Active Substance: LISINOPRIL
     Dosage: UNK UNK,UNK
     Route: 065

REACTIONS (8)
  - Injection site pain [Unknown]
  - Wrong technique in device usage process [Unknown]
  - Hypoacusis [Not Recovered/Not Resolved]
  - Device use issue [Unknown]
  - Injection site bruising [Unknown]
  - Injection site discolouration [Unknown]
  - Product use issue [Unknown]
  - Teeth brittle [Unknown]
